FAERS Safety Report 9933650 (Version 3)
Quarter: 2014Q2

REPORT INFORMATION
  Report Type: Spontaneous
  Country: US (occurrence: US)
  Receive Date: 20140228
  Receipt Date: 20140414
  Transmission Date: 20141212
  Serious: Yes (Life-Threatening, Hospitalization, Other)
  Sender: FDA-Public Use
  Company Number: US-BAYER-2013-070163

PATIENT
  Age: 43 Year
  Sex: Female

DRUGS (10)
  1. MIRENA [Suspect]
     Dosage: 20 MCG/24HR, CONT
     Route: 015
     Dates: start: 200702, end: 2013
  2. PANTOPRAZOLE [Concomitant]
     Dosage: 40 MG, UNK
  3. ALPRAZOLAM [Concomitant]
     Dosage: UNK
  4. ALPRAZOLAM [Concomitant]
     Dosage: 0.25 MG, UNK
  5. CIPROFLOXACIN [Concomitant]
     Dosage: 250 MG, UNK
  6. METRONIDAZOLE [Concomitant]
     Dosage: 500 MG, DAILY
     Route: 048
     Dates: start: 20130212
  7. LEVOFLOXACIN [Concomitant]
     Dosage: 500 MG, UNK
  8. COREG [Concomitant]
     Dosage: 25 MG, DAILY
     Route: 048
     Dates: start: 20130212
  9. PROTONIX [Concomitant]
     Dosage: 40 MG, DAILY
     Route: 048
  10. XANAX [Concomitant]
     Dosage: 0.25 MG, HS
     Route: 048

REACTIONS (50)
  - Post procedural haemorrhage [None]
  - Procedural pain [None]
  - Infection [None]
  - Device breakage [None]
  - Haematemesis [None]
  - Blood pressure increased [None]
  - Pelvic inflammatory disease [None]
  - Ovarian cyst [None]
  - Device difficult to use [None]
  - Gastric ulcer [None]
  - Hysterectomy [None]
  - Systolic hypertension [None]
  - Pelvic inflammatory disease [None]
  - Vaginal infection [None]
  - Genital haemorrhage [None]
  - Cough [None]
  - Haemorrhage [None]
  - Embedded device [None]
  - Renal abscess [None]
  - Ectopic pregnancy with contraceptive device [None]
  - Skin discolouration [None]
  - Drug ineffective [None]
  - Acne [None]
  - Abdominal pain [None]
  - Anaemia [None]
  - Abdominal distension [None]
  - Vision blurred [None]
  - Dizziness [None]
  - Loss of libido [None]
  - Vulvovaginal dryness [None]
  - Night sweats [None]
  - Palpitations [None]
  - Decreased appetite [None]
  - Back pain [None]
  - Headache [None]
  - Hypoaesthesia [None]
  - Dyspareunia [None]
  - Arthralgia [None]
  - Thyroid disorder [None]
  - Eczema [None]
  - Abdominal pain upper [None]
  - Chest pain [None]
  - Fatigue [None]
  - Constipation [None]
  - Feeling hot [None]
  - Parosmia [None]
  - Pulmonary congestion [None]
  - Medical device discomfort [None]
  - Mood altered [None]
  - Device dislocation [None]
